FAERS Safety Report 24702572 (Version 2)
Quarter: 2024Q4

REPORT INFORMATION
  Report Type: Report from Study
  Country: US (occurrence: US)
  Receive Date: 20241205
  Receipt Date: 20241210
  Transmission Date: 20250115
  Serious: Yes (Disabling, Other)
  Sender: UCB
  Company Number: US-UCBSA-2024047743

PATIENT
  Sex: Male
  Weight: 39.2 kg

DRUGS (22)
  1. FINTEPLA [Suspect]
     Active Substance: FENFLURAMINE
     Indication: Lennox-Gastaut syndrome
     Dosage: 6 MILLILITER, 2X/DAY (BID)
     Route: 048
     Dates: start: 20230606
  2. FINTEPLA [Suspect]
     Active Substance: FENFLURAMINE
     Dosage: 6 MILLILITER, 2X/DAY (BID)
     Route: 048
     Dates: start: 20230725
  3. FINTEPLA [Suspect]
     Active Substance: FENFLURAMINE
     Dosage: 6 MILLILITER, 2X/DAY (BID)
     Route: 048
     Dates: start: 20230726
  4. FINTEPLA [Suspect]
     Active Substance: FENFLURAMINE
     Dosage: 6 MILLILITER, 2X/DAY (BID)
     Route: 048
     Dates: start: 20240617
  5. VIMPAT [Suspect]
     Active Substance: LACOSAMIDE
     Indication: Product used for unknown indication
     Dosage: UNK (12.5 MLS IN MORNING AND  15 MLS IN EVENING)
     Route: 048
     Dates: start: 20240909
  6. VIMPAT [Suspect]
     Active Substance: LACOSAMIDE
     Dosage: 120 MILLIGRAM, 2X/DAY (BID) (WEEK 1 WEAN)
  7. VIMPAT [Suspect]
     Active Substance: LACOSAMIDE
     Dosage: 120 MILLIGRAM, 2X/DAY (BID) (WEEK 2 WEAN)
  8. VIMPAT [Suspect]
     Active Substance: LACOSAMIDE
     Dosage: 75 MILLIGRAM, 2X/DAY (BID) (WEEK 3 WEAN)
  9. VIMPAT [Suspect]
     Active Substance: LACOSAMIDE
     Dosage: 50 MILLIGRAM, 2X/DAY (BID) (WEEK 4 WEAN)
  10. VIMPAT [Suspect]
     Active Substance: LACOSAMIDE
     Dosage: 25 MILLIGRAM, 2X/DAY (BID) (WEEK 5 WEAN)
     Dates: end: 20241014
  11. NAYZILAM [Suspect]
     Active Substance: MIDAZOLAM
     Dosage: 5 MILLIGRAM
     Route: 045
     Dates: start: 20230502
  12. ZONISADE [Concomitant]
     Active Substance: ZONISAMIDE
     Indication: Product used for unknown indication
     Dosage: 7.5 MILLILITER, 2X/DAY (BID) (ORAL MSUSPENSION)
     Route: 048
     Dates: start: 20240612, end: 20241022
  13. ONFI [Concomitant]
     Active Substance: CLOBAZAM
     Indication: Product used for unknown indication
     Dosage: 5 MILLILITER, AT BEDTIME
     Route: 048
     Dates: start: 20240812, end: 20241022
  14. ELIDEL [Concomitant]
     Active Substance: PIMECROLIMUS
     Indication: Product used for unknown indication
     Dosage: UNK,  1 PERCENT AS NEEDED
     Dates: start: 20220907
  15. HYDROCORTISONE [Concomitant]
     Active Substance: HYDROCORTISONE
     Indication: Inflammation
     Dosage: UNK  (2.5 PERCENT)
     Dates: start: 20210827
  16. GLYCOLAX [Concomitant]
     Active Substance: POLYETHYLENE GLYCOL 3350
     Indication: Constipation
     Dosage: 8.5 GRAM
     Route: 048
     Dates: start: 20220802
  17. TRAZODONE HCL [Concomitant]
     Active Substance: TRAZODONE HYDROCHLORIDE
     Dosage: 100 MILLIGRAM (POWDER)
     Route: 048
     Dates: start: 20240909, end: 20241010
  18. TRAZODONE HCL [Concomitant]
     Active Substance: TRAZODONE HYDROCHLORIDE
     Dosage: 3 MILLILITER (POWDER) AT BEDTIME
     Route: 048
     Dates: start: 20240909
  19. TRAZODONE HCL [Concomitant]
     Active Substance: TRAZODONE HYDROCHLORIDE
     Dosage: 2 MILLILITER (POWDER) AT BEDTIME
     Route: 048
  20. TRAZODONE HCL [Concomitant]
     Active Substance: TRAZODONE HYDROCHLORIDE
     Dosage: 1 MILLILITER (POWDER) AT BEDTIME
     Route: 048
     Dates: end: 20241010
  21. KLONOPIN [Concomitant]
     Active Substance: CLONAZEPAM
     Indication: Product used for unknown indication
     Dosage: 0.5 MILLIGRAM, 2X/DAY (BID)
     Route: 048
     Dates: start: 20240912, end: 20241010
  22. TRAZODONE [Concomitant]
     Active Substance: TRAZODONE HYDROCHLORIDE
     Indication: Insomnia
     Dosage: 800 MILLIGRAM

REACTIONS (7)
  - Lennox-Gastaut syndrome [Not Recovered/Not Resolved]
  - Sedation complication [Not Recovered/Not Resolved]
  - Chorea [Recovered/Resolved]
  - Frequent bowel movements [Recovered/Resolved]
  - COVID-19 [Unknown]
  - Hyperkinesia [Unknown]
  - Pyrexia [Not Recovered/Not Resolved]

NARRATIVE: CASE EVENT DATE: 20240101
